FAERS Safety Report 9201996 (Version 1)
Quarter: 2013Q2

REPORT INFORMATION
  Report Type: Spontaneous
  Country: JP (occurrence: JP)
  Receive Date: 20130401
  Receipt Date: 20130401
  Transmission Date: 20140414
  Serious: Yes (Death, Hospitalization)
  Sender: FDA-Public Use
  Company Number: JP-ELI_LILLY_AND_COMPANY-JP201212001491

PATIENT
  Age: 42 Year
  Sex: Male

DRUGS (3)
  1. BYETTA [Suspect]
     Indication: TYPE 2 DIABETES MELLITUS
     Dosage: 5 UG, BID
     Route: 058
     Dates: start: 20110331, end: 20121120
  2. METFORMIN HYDROCHLORIDE [Concomitant]
     Dosage: 250 MG, TID
     Route: 048
     Dates: start: 20110331, end: 20121120
  3. CRESTOR [Concomitant]
     Indication: HYPERCHOLESTEROLAEMIA
     Dosage: 2.5 MG, QD
     Route: 048
     Dates: start: 20120331, end: 20121120

REACTIONS (2)
  - Acute myeloid leukaemia [Fatal]
  - Cerebral haemorrhage [Fatal]
